FAERS Safety Report 4269294-X (Version None)
Quarter: 2004Q1

REPORT INFORMATION
  Report Type: 
  Country: None (occurrence: None)
  Receive Date: 20040109
  Receipt Date: 20031224
  Transmission Date: 20041129
  Serious: Yes (Hospitalization)
  Sender: FDA-Public Use
  Company Number: DSA_23786_2003

PATIENT
  Age: 44 Year
  Sex: Female

DRUGS (3)
  1. LORAZEPAM [Suspect]
     Dosage: 45 MG ONCE PO
     Route: 048
     Dates: start: 20031220, end: 20031220
  2. DOCITON [Suspect]
     Dosage: 800 MG ONCE PO
     Route: 048
     Dates: start: 20031220, end: 20031220
  3. PRIMIDONE [Suspect]
     Dosage: 2500 MG ONCE PO
     Route: 048
     Dates: start: 20031220, end: 20031220

REACTIONS (4)
  - INTENTIONAL OVERDOSE [None]
  - MULTIPLE DRUG OVERDOSE [None]
  - SOMNOLENCE [None]
  - VOMITING [None]
